FAERS Safety Report 7648835-6 (Version None)
Quarter: 2011Q3

REPORT INFORMATION
  Report Type: 
  Country: None (occurrence: None)
  Receive Date: 20110801
  Receipt Date: 20110726
  Transmission Date: 20111222
  Serious: Yes (Death, Other)
  Sender: FDA-Public Use
  Company Number: PHHY2011FR67975

PATIENT
  Sex: Male

DRUGS (3)
  1. METHOTREXATE [Suspect]
     Indication: PROPHYLAXIS AGAINST GRAFT VERSUS HOST DISEASE
     Dosage: 26.55 MG DAILY
     Route: 042
     Dates: start: 20110317, end: 20110322
  2. SANDIMMUNE [Suspect]
     Indication: GRAFT VERSUS HOST DISEASE
     Dosage: 167.5 MG
     Route: 042
     Dates: start: 20110315, end: 20110326
  3. MORPHINE [Concomitant]
     Dosage: UNK UKN, UNK

REACTIONS (6)
  - GASTROINTESTINAL HAEMORRHAGE [None]
  - LUNG INFECTION [None]
  - ACUTE RESPIRATORY DISTRESS SYNDROME [None]
  - GRAFT VERSUS HOST DISEASE [None]
  - MUCOSAL ULCERATION [None]
  - MUCOSAL INFLAMMATION [None]
